FAERS Safety Report 24946540 (Version 1)
Quarter: 2025Q1

REPORT INFORMATION
  Report Type: Report from Study
  Country: US (occurrence: US)
  Receive Date: 20250210
  Receipt Date: 20250210
  Transmission Date: 20250408
  Serious: Yes (Hospitalization, Other)
  Sender: ALEXION PHARMACEUTICALS
  Company Number: US-ASTRAZENECA-202502USA002501US

PATIENT

DRUGS (1)
  1. STRENSIQ [Suspect]
     Active Substance: ASFOTASE ALFA
     Route: 065

REACTIONS (13)
  - Arthralgia [Unknown]
  - Weight increased [Unknown]
  - Facial pain [Unknown]
  - Peripheral swelling [Unknown]
  - Gout [Unknown]
  - Dysphonia [Unknown]
  - Diaphragmatic paralysis [Unknown]
  - Bone cyst [Unknown]
  - Fatigue [Unknown]
  - Pain in extremity [Unknown]
  - Blood pressure increased [Unknown]
  - Mean cell haemoglobin concentration decreased [Unknown]
  - Vitamin B12 increased [Unknown]
